FAERS Safety Report 17394782 (Version 2)
Quarter: 2020Q1

REPORT INFORMATION
  Report Type: Spontaneous
  Country: US (occurrence: US)
  Receive Date: 20200210
  Receipt Date: 20200223
  Transmission Date: 20200409
  Serious: No
  Sender: FDA-Public Use
  Company Number: US-AMGEN-USASP2020016336

PATIENT
  Age: 82 Year
  Sex: Female
  Weight: 83.9 kg

DRUGS (1)
  1. EVENITY [Suspect]
     Active Substance: ROMOSOZUMAB-AQQG
     Indication: PRODUCT USED FOR UNKNOWN INDICATION
     Dosage: 210 MILLIGRAM, QMO
     Route: 065
     Dates: start: 20190614, end: 20200108

REACTIONS (1)
  - Incision site pain [Recovered/Resolved]

NARRATIVE: CASE EVENT DATE: 2019
